FAERS Safety Report 7408861-9 (Version None)
Quarter: 2011Q2

REPORT INFORMATION
  Report Type: 
  Country: None (occurrence: None)
  Receive Date: 20110412
  Receipt Date: 20110331
  Transmission Date: 20111010
  Serious: Yes (Other)
  Sender: FDA-Public Use
  Company Number: PHFR2011GB02296

PATIENT
  Sex: Male

DRUGS (1)
  1. CLOZARIL [Suspect]
     Indication: SCHIZOPHRENIA
     Dosage: 750 MG, QD
     Route: 048
     Dates: start: 20080702

REACTIONS (3)
  - MENTAL DISORDER [None]
  - SCHIZOPHRENIA [None]
  - INCORRECT DOSE ADMINISTERED [None]
